FAERS Safety Report 24241875 (Version 2)
Quarter: 2024Q4

REPORT INFORMATION
  Report Type: Report from Study
  Country: US (occurrence: US)
  Receive Date: 20240823
  Receipt Date: 20241018
  Transmission Date: 20250115
  Serious: No
  Sender: ALEXION PHARMACEUTICALS
  Company Number: US-AstraZeneca-CH-00686803A

PATIENT

DRUGS (8)
  1. ULTOMIRIS [Suspect]
     Active Substance: RAVULIZUMAB-CWVZ
     Indication: Paroxysmal nocturnal haemoglobinuria
     Dosage: UNK
     Route: 065
  2. ULTOMIRIS [Suspect]
     Active Substance: RAVULIZUMAB-CWVZ
     Dosage: UNK
  3. ULTOMIRIS [Suspect]
     Active Substance: RAVULIZUMAB-CWVZ
     Dosage: UNK
     Route: 065
  4. ULTOMIRIS [Suspect]
     Active Substance: RAVULIZUMAB-CWVZ
     Dosage: UNK
  5. VOYDEYA [Suspect]
     Active Substance: DANICOPAN
     Indication: Product used for unknown indication
     Dosage: UNK
     Route: 065
  6. VOYDEYA [Suspect]
     Active Substance: DANICOPAN
     Dosage: UNK
  7. VOYDEYA [Suspect]
     Active Substance: DANICOPAN
     Dosage: UNK
     Route: 065
  8. VOYDEYA [Suspect]
     Active Substance: DANICOPAN
     Dosage: UNK

REACTIONS (2)
  - Blood bilirubin decreased [Unknown]
  - Blood lactate dehydrogenase increased [Unknown]
